FAERS Safety Report 7138019-2 (Version None)
Quarter: 2010Q4

REPORT INFORMATION
  Report Type: 
  Country: None (occurrence: None)
  Receive Date: 20101104
  Receipt Date: 20100331
  Transmission Date: 20110411
  Serious: Yes (Other)
  Sender: FDA-Public Use
  Company Number: US-WYE-H14479610

PATIENT
  Age: 34 Year
  Sex: Male
  Weight: 113.5 kg

DRUGS (3)
  1. ADVIL COLD AND SINUS [Suspect]
     Indication: HYPERSENSITIVITY
     Dosage: 1 CAPLET X1, ORAL
     Route: 048
     Dates: start: 20100330, end: 20100330
  2. ADVIL COLD AND SINUS [Suspect]
     Indication: NASOPHARYNGITIS
     Dosage: 1 CAPLET X1, ORAL
     Route: 048
     Dates: start: 20100330, end: 20100330
  3. NYQUIL (DEXTROMETHORPHAN HYDROBROMIDE/DOXYLAMINE SUCCINATE/EPHEDRINE S [Concomitant]

REACTIONS (2)
  - DYSGEUSIA [None]
  - PAROSMIA [None]
